FAERS Safety Report 9373571 (Version 1)
Quarter: 2013Q2

REPORT INFORMATION
  Report Type: Spontaneous
  Country: GE (occurrence: GE)
  Receive Date: 20130627
  Receipt Date: 20130627
  Transmission Date: 20140414
  Serious: Yes (Hospitalization)
  Sender: FDA-Public Use
  Company Number: GE-009507513-1306GEO005112

PATIENT
  Age: 56 Year
  Sex: Male

DRUGS (8)
  1. REBETOL [Suspect]
     Indication: HEPATITIS C
     Dosage: 1000 MG, QD
     Route: 048
     Dates: start: 20130517
  2. REBETOL [Suspect]
     Indication: HIV INFECTION
  3. PEGINTRON [Suspect]
     Indication: HEPATITIS C
     Dosage: 120MCG PER WEEK
     Route: 058
     Dates: start: 20130517
  4. PEGINTRON [Suspect]
     Indication: HIV INFECTION
  5. TRUVADA [Suspect]
     Indication: HIV INFECTION
     Dosage: UNK
  6. EFAVIRENZ [Suspect]
     Indication: HIV INFECTION
     Dosage: UNK
     Route: 048
  7. NONSTEROIDAL ANTI-INFLAMMATORY DRUG (UNSPECIFIED) [Concomitant]
     Indication: INFLUENZA LIKE ILLNESS
  8. ANTIMICROBIAL (UNSPECIFIED) [Concomitant]
     Indication: URINARY TRACT INFECTION BACTERIAL

REACTIONS (2)
  - Thrombocytosis [Not Recovered/Not Resolved]
  - Influenza like illness [Recovering/Resolving]
